FAERS Safety Report 6386225-7 (Version None)
Quarter: 2009Q3

REPORT INFORMATION
  Report Type: 
  Country: None (occurrence: None)
  Receive Date: 20090929
  Receipt Date: 20090518
  Transmission Date: 20100115
  Serious: No
  Sender: FDA-Public Use
  Company Number: 249795

PATIENT
  Age: 70 Year
  Sex: Female

DRUGS (5)
  1. LUCENTIS [Suspect]
     Indication: MACULAR DEGENERATION
     Dosage: 0.05, 1/MONTH, INTRAVITREAL
     Dates: start: 20070427
  2. DIGOXIN [Concomitant]
  3. LASIX [Concomitant]
  4. COZAAR [Concomitant]
  5. NORVASC [Concomitant]

REACTIONS (3)
  - CONJUNCTIVAL HAEMORRHAGE [None]
  - EYE PAIN [None]
  - VISUAL IMPAIRMENT [None]
